FAERS Safety Report 7867727-0 (Version None)
Quarter: 2011Q4

REPORT INFORMATION
  Report Type: 
  Country: None (occurrence: None)
  Receive Date: 20111028
  Receipt Date: 20111019
  Transmission Date: 20120403
  Serious: Yes (Hospitalization, Other)
  Sender: FDA-Public Use
  Company Number: CHPA2011US13323

PATIENT
  Sex: Female

DRUGS (4)
  1. MULTI-VITAMINS [Concomitant]
     Dosage: UNK, UNK
  2. GAS-X CHEWABLE TABLETS UNKNOWN [Suspect]
     Indication: FLATULENCE
     Dosage: 1 DF, QD
     Route: 048
     Dates: start: 20110918, end: 20110923
  3. ALEVE                              /00256202/ [Concomitant]
     Dosage: UNK, UNK
  4. ZOLOFT [Concomitant]
     Dosage: 50 MG, QD
     Route: 048

REACTIONS (70)
  - CARDIAC FAILURE [None]
  - MITRAL VALVE INCOMPETENCE [None]
  - BLOOD POTASSIUM DECREASED [None]
  - RALES [None]
  - MUSCULAR WEAKNESS [None]
  - SOMNOLENCE [None]
  - RED BLOOD CELLS URINE POSITIVE [None]
  - URINARY CASTS [None]
  - EXPIRED DRUG ADMINISTERED [None]
  - OXYGEN SATURATION DECREASED [None]
  - BUNDLE BRANCH BLOCK LEFT [None]
  - CARDIAC DISORDER [None]
  - EJECTION FRACTION DECREASED [None]
  - CONFUSIONAL STATE [None]
  - CLUMSINESS [None]
  - CREPITATIONS [None]
  - RHONCHI [None]
  - BACTERIAL TEST POSITIVE [None]
  - FACIAL PARESIS [None]
  - AGNOSIA [None]
  - LETHARGY [None]
  - MENTAL STATUS CHANGES [None]
  - HEART RATE INCREASED [None]
  - LEFT VENTRICULAR DYSFUNCTION [None]
  - DYSPNOEA [None]
  - COUGH [None]
  - BLOOD CHLORIDE DECREASED [None]
  - BLOOD CHOLESTEROL INCREASED [None]
  - BLOOD UREA INCREASED [None]
  - HYPOKINESIA [None]
  - BLOOD PRESSURE INCREASED [None]
  - PANIC ATTACK [None]
  - CRYING [None]
  - RESPIRATORY RATE INCREASED [None]
  - BLOOD BILIRUBIN ABNORMAL [None]
  - NEUTROPHIL COUNT INCREASED [None]
  - BLOOD UREA NITROGEN/CREATININE RATIO INCREASED [None]
  - EMOTIONAL DISTRESS [None]
  - VIITH NERVE PARALYSIS [None]
  - BLINDNESS [None]
  - MASTOIDITIS [None]
  - AKINESIA [None]
  - MUSCLE TWITCHING [None]
  - POLYURIA [None]
  - LOW DENSITY LIPOPROTEIN INCREASED [None]
  - WHITE BLOOD CELL COUNT INCREASED [None]
  - CARDIOMEGALY [None]
  - NERVOUS SYSTEM DISORDER [None]
  - EYE DISORDER [None]
  - BLOOD SODIUM DECREASED [None]
  - BRAIN NATRIURETIC PEPTIDE INCREASED [None]
  - LYMPHOCYTE COUNT DECREASED [None]
  - MONOCYTE COUNT DECREASED [None]
  - GLOMERULAR FILTRATION RATE DECREASED [None]
  - OFF LABEL USE [None]
  - PULMONARY OEDEMA [None]
  - HEART RATE IRREGULAR [None]
  - ENCEPHALOMALACIA [None]
  - ASTHENIA [None]
  - DROOLING [None]
  - CONVULSION [None]
  - HEMIPLEGIA [None]
  - HEMIANOPIA [None]
  - TACHYCARDIA [None]
  - APHASIA [None]
  - DYSARTHRIA [None]
  - CARDIOMYOPATHY [None]
  - PULMONARY VASCULAR DISORDER [None]
  - BLOOD GLUCOSE INCREASED [None]
  - WHITE BLOOD CELLS URINE POSITIVE [None]
